FAERS Safety Report 10952064 (Version 1)
Quarter: 2015Q1

REPORT INFORMATION
  Report Type: Spontaneous
  Country: US (occurrence: None)
  Receive Date: 20150324
  Receipt Date: 20150324
  Transmission Date: 20150721
  Serious: Yes (Life-Threatening, Other)
  Sender: FDA-Public Use
  Company Number: None

PATIENT
  Age: 71 Year
  Sex: Female
  Weight: 65.77 kg

DRUGS (5)
  1. MULTI-VITAMINS (CALCIUM PANTOTHENATE, FOLIC ACID, VITAMINS NOS) [Concomitant]
     Active Substance: VITAMINS
  2. ATENANOL [Concomitant]
  3. VITAMIN D [Concomitant]
     Active Substance: CHOLECALCIFEROL
  4. VALIUM [Concomitant]
     Active Substance: DIAZEPAM
  5. CHOLESTYRAMINE POWDER [Suspect]
     Active Substance: CHOLESTYRAMINE
     Indication: BLOOD CHOLESTEROL INCREASED
     Dosage: 1 SCOOP PER DAY, ONCE A DAY, BY MOUTH IN ANY LIQUID
     Route: 048
     Dates: start: 20141222, end: 201502

REACTIONS (5)
  - Throat tightness [None]
  - Wheezing [None]
  - Laryngeal oedema [None]
  - Pharyngeal oedema [None]
  - Asphyxia [None]

NARRATIVE: CASE EVENT DATE: 201502
